FAERS Safety Report 8165797-6 (Version None)
Quarter: 2012Q1

REPORT INFORMATION
  Report Type: 
  Country: None (occurrence: None)
  Receive Date: 20120227
  Receipt Date: 20110223
  Transmission Date: 20120608
  Serious: No
  Sender: FDA-Public Use
  Company Number: US-MYLANLABS-2011S1003688

PATIENT
  Age: 40 Year
  Sex: Female

DRUGS (4)
  1. TRI-SPRINTEC [Concomitant]
     Indication: CONTRACEPTION
  2. AMNESTEEM [Suspect]
     Route: 048
     Dates: end: 20110222
  3. DIOVAN [Concomitant]
  4. AMNESTEEM [Suspect]
     Indication: ACNE
     Route: 048
     Dates: end: 20110222

REACTIONS (8)
  - HEADACHE [None]
  - ARTHRALGIA [None]
  - GROIN PAIN [None]
  - ALOPECIA [None]
  - VISION BLURRED [None]
  - ABDOMINAL PAIN UPPER [None]
  - LIP DRY [None]
  - EPISTAXIS [None]
